FAERS Safety Report 11124482 (Version 1)
Quarter: 2015Q2

REPORT INFORMATION
  Report Type: Spontaneous
  Country: US (occurrence: US)
  Receive Date: 20150520
  Receipt Date: 20150520
  Transmission Date: 20150821
  Serious: Yes (Hospitalization)
  Sender: FDA-Public Use
  Company Number: US-BAYER-2015-232272

PATIENT
  Age: 83 Year
  Sex: Male

DRUGS (6)
  1. RIVAROXABAN [Suspect]
     Active Substance: RIVAROXABAN
     Indication: DEEP VEIN THROMBOSIS
     Dosage: UNK
  2. ACETYLSALICYLIC ACID (} 100 MG) [Suspect]
     Active Substance: ASPIRIN
     Dosage: UNK
  3. RIVAROXABAN [Suspect]
     Active Substance: RIVAROXABAN
     Indication: DEEP VEIN THROMBOSIS
     Dosage: 15 MG, BID
     Route: 048
  4. ACETYLSALICYLIC ACID (} 100 MG) [Suspect]
     Active Substance: ASPIRIN
     Dosage: DAILY DOSE 325 MG
     Route: 048
  5. AMIODARONE [Suspect]
     Active Substance: AMIODARONE
     Dosage: DAILY DOSE 200 MG
     Route: 048
  6. DILTIAZEM HYDROCHLORIDE EXTENDED RELEASE [Suspect]
     Active Substance: DILTIAZEM HYDROCHLORIDE
     Dosage: DAILY DOSE 180 MG
     Route: 048

REACTIONS (9)
  - Epistaxis [Recovering/Resolving]
  - Haemoglobin decreased [Recovering/Resolving]
  - Hypotension [Recovering/Resolving]
  - Ecchymosis [Recovering/Resolving]
  - Drug interaction [None]
  - International normalised ratio increased [Recovering/Resolving]
  - Blood urea nitrogen/creatinine ratio increased [None]
  - Upper gastrointestinal haemorrhage [Recovering/Resolving]
  - Coagulopathy [Recovering/Resolving]
